FAERS Safety Report 21541168 (Version 3)
Quarter: 2022Q4

REPORT INFORMATION
  Report Type: Spontaneous
  Country: ZA (occurrence: ZA)
  Receive Date: 20221102
  Receipt Date: 20221201
  Transmission Date: 20230113
  Serious: Yes (Other)
  Sender: FDA-Public Use
  Company Number: ZA-MYLANLABS-2022M1116496

PATIENT
  Sex: Female

DRUGS (1)
  1. FLUOROURACIL [Suspect]
     Active Substance: FLUOROURACIL
     Indication: Skin disorder
     Dosage: BID (PRESCRIBED ONCE DAILY, BUT AFTER NO EFFECT IN FIRST WEEK, PATIENT DECIDED TO APPLY BID)
     Route: 061
     Dates: start: 20220925, end: 20221025

REACTIONS (2)
  - Skin discolouration [Not Recovered/Not Resolved]
  - Drug ineffective [Unknown]
